FAERS Safety Report 18639401 (Version 1)
Quarter: 2020Q4

REPORT INFORMATION
  Report Type: Spontaneous
  Country: GB (occurrence: GB)
  Receive Date: 20201219
  Receipt Date: 20201219
  Transmission Date: 20210114
  Serious: Yes (Disabling)
  Sender: FDA-Public Use
  Company Number: GB-009507513-2012GBR007726

PATIENT
  Age: 28 Year
  Sex: Female
  Weight: 72 kg

DRUGS (1)
  1. MIRTAZAPINE. [Suspect]
     Active Substance: MIRTAZAPINE
     Indication: ANXIETY
     Dosage: 15 MILLIGRAM
     Route: 048
     Dates: start: 202009

REACTIONS (1)
  - Anorgasmia [Not Recovered/Not Resolved]
